FAERS Safety Report 5595292-X (Version None)
Quarter: 2008Q1

REPORT INFORMATION
  Report Type: 
  Country: None (occurrence: None)
  Receive Date: 20080117
  Receipt Date: 20080115
  Transmission Date: 20080703
  Serious: Yes (Hospitalization)
  Sender: FDA-Public Use
  Company Number: US-MERCK-0706USA00675

PATIENT
  Age: 80 Year
  Sex: Female

DRUGS (2)
  1. FOSAMAX [Suspect]
     Indication: OSTEOPOROSIS
     Route: 048
  2. PREMARIN [Concomitant]
     Route: 065
     Dates: start: 19670101

REACTIONS (9)
  - ABSCESS [None]
  - ANXIETY [None]
  - ASTHMA [None]
  - DEPRESSION [None]
  - OEDEMA MOUTH [None]
  - PAIN IN JAW [None]
  - PELVIC FRACTURE [None]
  - RESORPTION BONE INCREASED [None]
  - TOOTH LOSS [None]
